FAERS Safety Report 21810442 (Version 5)
Quarter: 2023Q1

REPORT INFORMATION
  Report Type: Report from Study
  Country: US (occurrence: US)
  Receive Date: 20230103
  Receipt Date: 20230202
  Transmission Date: 20230417
  Serious: No
  Sender: FDA-Public Use
  Company Number: US-002147023-NVSC2023US000882

PATIENT
  Sex: Female

DRUGS (1)
  1. COSENTYX [Suspect]
     Active Substance: SECUKINUMAB
     Indication: Psoriasis
     Dosage: 300 MG, QW
     Route: 058
     Dates: start: 20221207

REACTIONS (6)
  - Procedural pain [Unknown]
  - Sleep disorder [Unknown]
  - Pruritus [Unknown]
  - Pharyngitis streptococcal [Unknown]
  - Fatigue [Unknown]
  - Psoriasis [Unknown]
